FAERS Safety Report 18794676 (Version 1)
Quarter: 2021Q1

REPORT INFORMATION
  Report Type: Spontaneous
  Country: GB (occurrence: GB)
  Receive Date: 20210127
  Receipt Date: 20210127
  Transmission Date: 20210419
  Serious: Yes (Other)
  Sender: FDA-Public Use
  Company Number: GB-MYLANLABS-2021M1004666

PATIENT
  Age: 65 Year
  Sex: Male
  Weight: 66 kg

DRUGS (9)
  1. LERCANIDIPINE [Suspect]
     Active Substance: LERCANIDIPINE
     Indication: PRODUCT USED FOR UNKNOWN INDICATION
     Dosage: 1 DOSAGE FORM, QD
     Dates: start: 20200807, end: 20201117
  2. RAMIPRIL. [Concomitant]
     Active Substance: RAMIPRIL
     Dosage: 1 DOSAGE FORM, QD
     Dates: start: 20201214
  3. LOSARTAN. [Concomitant]
     Active Substance: LOSARTAN
     Dosage: 1 DOSAGE FORM, QD
     Route: 048
     Dates: start: 20191203
  4. GLICLAZIDE [Concomitant]
     Active Substance: GLICLAZIDE
     Dosage: 1 DOSAGE FORM, BID
     Dates: start: 20200604
  5. INDAPAMIDE. [Concomitant]
     Active Substance: INDAPAMIDE
     Dosage: 1 DOSAGE FORM, QD (EACH MORNING)
     Dates: start: 20200723
  6. BISOPROLOL [Concomitant]
     Active Substance: BISOPROLOL
     Dosage: 2 DOSAGE FORM, QD
     Dates: start: 20201015
  7. METFORMIN [Concomitant]
     Active Substance: METFORMIN HYDROCHLORIDE
     Dosage: 2 DOSAGE FORM, BID
     Dates: start: 20200807
  8. SIMVASTATIN. [Concomitant]
     Active Substance: SIMVASTATIN
     Dosage: 1 DOSAGE FORM, QD (EACH NIGHT )
     Dates: start: 20191203
  9. DOXAZOSIN [Suspect]
     Active Substance: DOXAZOSIN MESYLATE
     Indication: PRODUCT USED FOR UNKNOWN INDICATION
     Dosage: 4 MILLIGRAM
     Route: 048

REACTIONS (1)
  - Constipation [Recovered/Resolved]

NARRATIVE: CASE EVENT DATE: 20210120
